FAERS Safety Report 5011440-4 (Version None)
Quarter: 2006Q2

REPORT INFORMATION
  Report Type: 
  Country: None (occurrence: None)
  Receive Date: 20060524
  Receipt Date: 20060510
  Transmission Date: 20061013
  Serious: Yes (Hospitalization)
  Sender: FDA-Public Use
  Company Number: LTI2006A00072

PATIENT
  Age: 64 Year
  Sex: Female

DRUGS (7)
  1. ACTOS [Suspect]
     Indication: DIABETES MELLITUS NON-INSULIN-DEPENDENT
     Dosage: 30 (30 MG, 1 IN 1 D) ORAL
     Route: 048
     Dates: start: 20051230, end: 20060127
  2. ACTOS [Suspect]
     Indication: DIABETES MELLITUS NON-INSULIN-DEPENDENT
     Dosage: 30 (30 MG, 1 IN 1 D) ORAL
     Route: 048
     Dates: start: 20060127, end: 20060314
  3. AMARYL [Concomitant]
  4. COTAREG (HYDROCHLOROTHIAZIDE, VALSARTAN) [Concomitant]
  5. HYPERIUM (RILMENIDINE) [Concomitant]
  6. INDAPAMIDE [Concomitant]
  7. DILTIAZEM HYDROCHLORIDE [Concomitant]

REACTIONS (6)
  - ATRIAL FIBRILLATION [None]
  - HYPERSENSITIVITY [None]
  - PULMONARY OEDEMA [None]
  - RASH ERYTHEMATOUS [None]
  - RENAL FAILURE [None]
  - TACHYARRHYTHMIA [None]
